FAERS Safety Report 5207107-X (Version None)
Quarter: 2007Q1

REPORT INFORMATION
  Report Type: 
  Country: None (occurrence: None)
  Receive Date: 20070110
  Receipt Date: 20070102
  Transmission Date: 20070707
  Serious: Yes (Life-Threatening)
  Sender: FDA-Public Use
  Company Number: 07H-163-0311637-00

PATIENT
  Age: 34 Year
  Sex: Female

DRUGS (7)
  1. SUCCINYLCHOLINE CHLORIDE INJECTION (SUCCINYLCHLOINE CHLORIDE) (SUCCINY [Suspect]
     Indication: ELECTROCONVULSIVE THERAPY
     Dosage: SEE IMAGE
  2. SUCCINYLCHOLINE CHLORIDE INJECTION (SUCCINYLCHLOINE CHLORIDE) (SUCCINY [Suspect]
     Indication: INTUBATION
     Dosage: SEE IMAGE
  3. BROMOCRIPTINE MESYLATE [Concomitant]
  4. LORAZEPAM [Concomitant]
  5. ETOMIDATE [Concomitant]
  6. GLYCOPYRROLATE [Concomitant]
  7. PROPOFOL [Concomitant]

REACTIONS (4)
  - HYPERKALAEMIA [None]
  - PROCEDURAL COMPLICATION [None]
  - RESPIRATORY ACIDOSIS [None]
  - TACHYCARDIA [None]
